FAERS Safety Report 9428129 (Version 1)
Quarter: 2013Q3

REPORT INFORMATION
  Report Type: Report from Study
  Country: US (occurrence: US)
  Receive Date: 20130730
  Receipt Date: 20130730
  Transmission Date: 20140515
  Serious: No
  Sender: FDA-Public Use
  Company Number: US-ABBOTT-12P-163-0992762-00

PATIENT
  Age: 52 Year
  Sex: Male
  Weight: 83.99 kg

DRUGS (10)
  1. NIASPAN (COATED) [Suspect]
     Indication: PRODUCT USED FOR UNKNOWN INDICATION
     Dates: start: 201209, end: 20121006
  2. NIASPAN (COATED) [Suspect]
     Dates: start: 20121008
  3. ASA [Concomitant]
     Indication: PRODUCT USED FOR UNKNOWN INDICATION
  4. ATORVASTATIN [Concomitant]
     Indication: PRODUCT USED FOR UNKNOWN INDICATION
  5. LOSARTIN [Concomitant]
     Indication: PRODUCT USED FOR UNKNOWN INDICATION
  6. METFORMIN [Concomitant]
     Indication: PRODUCT USED FOR UNKNOWN INDICATION
  7. VITAMIN D NOS [Concomitant]
     Indication: PRODUCT USED FOR UNKNOWN INDICATION
  8. OMEGA 3 [Concomitant]
  9. ANTI-INFLAMMATORY [Concomitant]
     Indication: PRODUCT USED FOR UNKNOWN INDICATION
  10. TRAMADOL [Concomitant]
     Indication: PRODUCT USED FOR UNKNOWN INDICATION

REACTIONS (7)
  - Drug dose omission [Recovered/Resolved]
  - Flushing [Recovered/Resolved]
  - Flushing [Not Recovered/Not Resolved]
  - Poor quality sleep [Unknown]
  - Feeling hot [Unknown]
  - Pruritus [Unknown]
  - Paraesthesia [Unknown]
